FAERS Safety Report 11079225 (Version 3)
Quarter: 2015Q4

REPORT INFORMATION
  Report Type: Spontaneous
  Country: IT (occurrence: IT)
  Receive Date: 20150430
  Receipt Date: 20151009
  Transmission Date: 20160304
  Serious: Yes (Death, Hospitalization)
  Sender: FDA-Public Use
  Company Number: IT-BAYER-2015-157533

PATIENT
  Age: 35 Year
  Sex: Male

DRUGS (3)
  1. NEXAVAR [Suspect]
     Active Substance: SORAFENIB
     Indication: ACUTE MYELOID LEUKAEMIA
     Dosage: DAILY DOSE 800 MG
     Route: 048
     Dates: start: 20150318
  2. NEXAVAR [Suspect]
     Active Substance: SORAFENIB
     Indication: ACUTE MYELOID LEUKAEMIA
     Dosage: 400 MG, QD
     Dates: end: 20150411
  3. IDARUBICIN [Concomitant]
     Active Substance: IDARUBICIN

REACTIONS (1)
  - Leukocytosis [Fatal]

NARRATIVE: CASE EVENT DATE: 20150411
